FAERS Safety Report 8912695 (Version 1)
Quarter: 2012Q4

REPORT INFORMATION
  Report Type: 
  Country: US (occurrence: US)
  Receive Date: 20121116
  Receipt Date: 20121116
  Transmission Date: 20130627
  Serious: Yes (Other)
  Sender: FDA-Public Use
  Company Number: US-ROCHE-1153435

PATIENT

DRUGS (16)
  1. DACLIZUMAB [Suspect]
     Indication: PROPHYLAXIS AGAINST TRANSPLANT REJECTION
     Dosage: days 0, 14, 28, 42, and 56.
     Route: 065
  2. MYCOPHENOLATE MOFETIL [Suspect]
     Indication: PROPHYLAXIS AGAINST TRANSPLANT REJECTION
     Route: 048
  3. SIROLIMUS [Suspect]
     Indication: PROPHYLAXIS AGAINST TRANSPLANT REJECTION
     Dosage: 12-15 ng/ml
     Route: 065
  4. TACROLIMUS [Suspect]
     Indication: PROPHYLAXIS AGAINST TRANSPLANT REJECTION
     Dosage: 3-6 ng/ml
     Route: 065
  5. ETANERCEPT [Suspect]
     Indication: PROPHYLAXIS AGAINST TRANSPLANT REJECTION
     Dosage: one hour before transplantation
     Route: 042
  6. ETANERCEPT [Suspect]
     Route: 058
  7. ANTITHYMOCYTE GLOBULIN [Suspect]
     Indication: PROPHYLAXIS AGAINST TRANSPLANT REJECTION
     Route: 065
  8. VALGANCICLOVIR [Concomitant]
     Indication: GRAFT LOSS
     Route: 065
  9. TRIMETHOPRIM [Concomitant]
     Route: 065
  10. SULFAMETHOXAZOLE [Concomitant]
     Route: 065
  11. ASPIRIN [Concomitant]
     Route: 065
  12. VITAMIN A [Concomitant]
     Route: 065
  13. VITAMIN B6 [Concomitant]
     Route: 065
  14. VITAMIN E [Concomitant]
     Route: 065
  15. EXENATIDE [Concomitant]
     Route: 058
  16. SITAGLIPTIN [Concomitant]
     Route: 065

REACTIONS (3)
  - Myocardial ischaemia [Unknown]
  - Ileus [Unknown]
  - Diarrhoea [Unknown]
